FAERS Safety Report 7866875-9 (Version None)
Quarter: 2011Q4

REPORT INFORMATION
  Report Type: 
  Country: None (occurrence: None)
  Receive Date: 20111028
  Receipt Date: 20111027
  Transmission Date: 20120403
  Serious: Yes (Hospitalization, Other)
  Sender: FDA-Public Use
  Company Number: AU-ROCHE-1003496

PATIENT
  Sex: Male

DRUGS (5)
  1. SUMATRIPTAN SUCCINATE [Concomitant]
  2. ACTEMRA [Suspect]
     Indication: RHEUMATOID ARTHRITIS
     Route: 065
  3. ARAVA [Concomitant]
     Indication: RHEUMATOID ARTHRITIS
  4. METHOTREXATE [Concomitant]
  5. ATACAND HCT [Concomitant]

REACTIONS (2)
  - JOINT EFFUSION [None]
  - ARTHROSCOPY [None]
